FAERS Safety Report 4892401-2 (Version None)
Quarter: 2006Q1

REPORT INFORMATION
  Report Type: 
  Country: None (occurrence: None)
  Receive Date: 20060126
  Receipt Date: 20050112
  Transmission Date: 20060701
  Serious: Yes (Hospitalization, Disabling, Other)
  Sender: FDA-Public Use
  Company Number: US-MERCK-0501USA02354

PATIENT
  Age: 65 Year
  Sex: Female
  Weight: 45 kg

DRUGS (2)
  1. VIOXX [Suspect]
     Indication: RHEUMATOID ARTHRITIS
     Route: 048
     Dates: start: 19990901, end: 20041001
  2. TYLENOL (CAPLET) [Concomitant]
     Route: 065

REACTIONS (6)
  - AORTIC VALVE REPLACEMENT [None]
  - ATRIOVENTRICULAR BLOCK [None]
  - CARDIAC OPERATION [None]
  - CARDIAC PACEMAKER INSERTION [None]
  - CEREBROVASCULAR ACCIDENT [None]
  - CONVULSION [None]
